FAERS Safety Report 8781221 (Version 1)
Quarter: 2012Q4

REPORT INFORMATION
  Report Type: 
  Country: US (occurrence: US)
  Receive Date: 20120913
  Receipt Date: 20120913
  Transmission Date: 20130627
  Serious: No
  Sender: FDA-Public Use
  Company Number: US-VERTEX PHARMACEUTICAL INC.-AE-2012-006802

PATIENT

DRUGS (6)
  1. INCIVEK [Suspect]
     Indication: HEPATITIS C
     Route: 048
     Dates: start: 20120420, end: 20120514
  2. PEGASYS [Concomitant]
     Indication: HEPATITIS C
     Dates: start: 20120420, end: 20120514
  3. RIBAPAK [Concomitant]
     Indication: HEPATITIS C
     Dates: start: 20120420, end: 20120514
  4. CELEXA [Concomitant]
  5. TRAMADOL [Concomitant]
  6. LISINOPRIL/ HCTZ [Concomitant]

REACTIONS (1)
  - Fatigue [Unknown]
